FAERS Safety Report 10908520 (Version 1)
Quarter: 2015Q1

REPORT INFORMATION
  Report Type: Spontaneous
  Country: None (occurrence: None)
  Receive Date: 20150309
  Receipt Date: 20150309
  Transmission Date: 20150721
  Serious: Yes (Hospitalization)
  Sender: FDA-Public Use
  Company Number: None

PATIENT
  Age: 30 Year
  Sex: Female
  Weight: 63.5 kg

DRUGS (2)
  1. SKELAXIN [Suspect]
     Active Substance: METAXALONE
     Indication: NECK PAIN
     Route: 048
  2. SKELAXIN [Suspect]
     Active Substance: METAXALONE
     Indication: BACK PAIN
     Route: 048

REACTIONS (10)
  - Asthenia [None]
  - Chills [None]
  - Mydriasis [None]
  - Fatigue [None]
  - Diplopia [None]
  - Restlessness [None]
  - Urinary retention [None]
  - Abasia [None]
  - Speech disorder [None]
  - Tremor [None]

NARRATIVE: CASE EVENT DATE: 20150301
